FAERS Safety Report 5185305-1 (Version None)
Quarter: 2006Q4

REPORT INFORMATION
  Report Type: 
  Country: None (occurrence: None)
  Receive Date: 20061220
  Receipt Date: 20061122
  Transmission Date: 20070319
  Serious: Yes (Hospitalization)
  Sender: FDA-Public Use
  Company Number: ES-ELI_LILLY_AND_COMPANY-ES200611004350

PATIENT
  Age: 79 Year
  Sex: Female

DRUGS (2)
  1. FORTEO [Suspect]
     Indication: OSTEOPOROSIS
     Dosage: 20 UG, DAILY (1/D)
     Route: 058
     Dates: start: 20060601, end: 20061023
  2. CALCIUM [Concomitant]
     Indication: OSTEOPOROSIS

REACTIONS (3)
  - CEREBRAL INFARCTION [None]
  - INCONTINENCE [None]
  - THROMBOSIS [None]
